FAERS Safety Report 7337395-5 (Version None)
Quarter: 2011Q1

REPORT INFORMATION
  Report Type: 
  Country: None (occurrence: None)
  Receive Date: 20110308
  Receipt Date: 20100909
  Transmission Date: 20110831
  Serious: Yes (Other)
  Sender: FDA-Public Use
  Company Number: US-BAYER-201015567NA

PATIENT
  Sex: Female
  Weight: 56.236 kg

DRUGS (27)
  1. CEFADROXIL [Concomitant]
     Dosage: 500 MG, UNK
     Route: 048
     Dates: start: 20030603
  2. PULMICORT [Concomitant]
     Dosage: 180 MCG
     Route: 055
     Dates: start: 20070618
  3. LOTRONEX [Concomitant]
     Dosage: 0.5 MG, UNK
     Route: 048
     Dates: start: 20091015
  4. YAZ [Suspect]
     Dosage: UNK
     Dates: start: 20030521, end: 20080501
  5. CIPROFLOXACIN [Concomitant]
     Dosage: 500 MG, UNK
     Route: 048
     Dates: start: 20061017
  6. ASACOL [Concomitant]
     Dosage: 400 MG, UNK
     Route: 048
     Dates: start: 20071226
  7. CEFDINIR [Concomitant]
     Dosage: 300 MG, UNK
     Route: 048
     Dates: start: 20080228
  8. COTRIM [Concomitant]
     Dosage: 400-800 MG
     Route: 048
     Dates: start: 20061025
  9. CEPHALEXIN [Concomitant]
     Dosage: 500 MG, UNK
     Route: 048
     Dates: start: 20070412
  10. METHYLPREDNISOLONE ACETATE [Concomitant]
     Dosage: 4 MG PAK
     Route: 048
     Dates: start: 20081107
  11. ZITHROMAX [Concomitant]
     Dosage: Z-PACK TABLETS
     Route: 048
     Dates: start: 20030605
  12. CLINDAMYCIN [Concomitant]
     Dosage: 300 MG, UNK
     Route: 048
     Dates: start: 20060206
  13. AMITRIPTYLINE [Concomitant]
     Dosage: 10 MG, UNK
     Route: 048
     Dates: start: 20071220
  14. PREVACID [Concomitant]
     Dosage: 30 MG, UNK
     Route: 048
     Dates: start: 20071220
  15. HYDROCODONE BITARTRATE AND ACETAMINOPHEN [Concomitant]
     Dosage: 7.5/500MG
     Route: 048
     Dates: start: 20080313
  16. FLUCONAZOLE [Concomitant]
     Dosage: 150 MG, UNK
     Route: 048
     Dates: start: 20080502
  17. OCELLA [Suspect]
     Dosage: UNK
     Dates: start: 20080714, end: 20090901
  18. PERCOCET [Concomitant]
     Dosage: 7.5/325 MG
     Route: 048
     Dates: start: 20030603
  19. PEN-VEE K [Concomitant]
  20. HYOSCYAMINE [Concomitant]
     Dosage: 0.375 MG, UNK
     Route: 048
     Dates: start: 20071206
  21. COLESTIPOL HYDROCHLORIDE [Concomitant]
     Dosage: 1 G, UNK
     Route: 048
  22. YASMIN [Suspect]
     Indication: PREMENSTRUAL SYNDROME
     Route: 048
  23. AMOXICILLIN [Concomitant]
     Dosage: 250 MG/5 ML
     Route: 048
     Dates: start: 20060329
  24. ZYRTEC [Concomitant]
     Dosage: 10 MG, UNK
     Route: 048
     Dates: start: 20070329
  25. DICYCLOMINE [Concomitant]
     Dosage: 10 MG, UNK
     Route: 048
     Dates: start: 20070706
  26. UNCODEABLE ^UNCLASSIFIABLE^ [Concomitant]
     Dosage: 25 MG, UNK
     Route: 048
     Dates: start: 20080212
  27. NEXIUM [Concomitant]
     Dosage: 40 MG, UNK
     Route: 048
     Dates: start: 20040224

REACTIONS (5)
  - ABDOMINAL PAIN [None]
  - POST PROCEDURAL COMPLICATION [None]
  - PROCEDURAL NAUSEA [None]
  - GALLBLADDER DISORDER [None]
  - PROCEDURAL VOMITING [None]
